FAERS Safety Report 23307559 (Version 1)
Quarter: 2023Q4

REPORT INFORMATION
  Report Type: Spontaneous
  Country: US (occurrence: US)
  Receive Date: 20231218
  Receipt Date: 20231218
  Transmission Date: 20240110
  Serious: No
  Sender: FDA-Public Use
  Company Number: US-JNJFOC-20230814650

PATIENT
  Age: 3 Decade
  Sex: Female

DRUGS (14)
  1. TYLENOL REGULAR STRENGTH [Suspect]
     Active Substance: ACETAMINOPHEN
     Indication: Product used for unknown indication
     Dosage: (PREGNANCY WITH CHILD 1)
     Route: 065
     Dates: start: 200810, end: 200905
  2. TYLENOL REGULAR STRENGTH [Suspect]
     Active Substance: ACETAMINOPHEN
     Dosage: (PREGNANCY WITH CHILD 2)
     Route: 065
     Dates: start: 201012, end: 201107
  3. TYLENOL EXTRA STRENGTH [Suspect]
     Active Substance: ACETAMINOPHEN
     Indication: Product used for unknown indication
     Dosage: (PREGNANCY WITH CHILD 1)
     Route: 065
     Dates: start: 200810, end: 200905
  4. TYLENOL EXTRA STRENGTH [Suspect]
     Active Substance: ACETAMINOPHEN
     Dosage: (PREGNANCY WITH CHILD 2)
     Route: 065
     Dates: start: 201012, end: 201107
  5. TYLENOL EXTRA STRENGTH [Suspect]
     Active Substance: ACETAMINOPHEN
     Indication: Product used for unknown indication
     Dosage: (PREGNANCY WITH CHILD 1)
     Route: 065
     Dates: start: 200810, end: 200905
  6. TYLENOL EXTRA STRENGTH [Suspect]
     Active Substance: ACETAMINOPHEN
     Dosage: (PREGNANCY WITH CHILD 2)
     Route: 065
     Dates: start: 201012, end: 201107
  7. TYLENOL [Suspect]
     Active Substance: ACETAMINOPHEN
     Indication: Headache
     Dosage: 1-2 TIMES PER WEEK (PREGNANCY WITH CHILD 1)
     Route: 048
     Dates: start: 200809, end: 200905
  8. TYLENOL [Suspect]
     Active Substance: ACETAMINOPHEN
     Indication: Back pain
     Dosage: 1-2 TIMES PER WEEK (PREGNANCY WITH CHILD 2)
     Route: 048
     Dates: start: 201011, end: 201107
  9. ACETAMINOPHEN [Suspect]
     Active Substance: ACETAMINOPHEN
     Indication: Product used for unknown indication
     Dosage: (PREGNANCY WITH CHILD 1)
     Route: 065
     Dates: start: 200810, end: 200905
  10. ACETAMINOPHEN [Suspect]
     Active Substance: ACETAMINOPHEN
     Dosage: (PREGNANCY WITH CHILD 2)
     Route: 065
     Dates: start: 201012, end: 201107
  11. ACETAMINOPHEN [Suspect]
     Active Substance: ACETAMINOPHEN
     Indication: Product used for unknown indication
     Dosage: (PREGNANCY WITH CHILD 1)
     Route: 065
     Dates: start: 200810, end: 200905
  12. ACETAMINOPHEN [Suspect]
     Active Substance: ACETAMINOPHEN
     Dosage: (PREGNANCY WITH CHILD 2)
     Route: 065
     Dates: start: 201012, end: 201107
  13. ACETAMINOPHEN [Suspect]
     Active Substance: ACETAMINOPHEN
     Indication: Product used for unknown indication
     Dosage: (PREGNANCY WITH CHILD 1)
     Route: 065
     Dates: start: 200810, end: 200905
  14. ACETAMINOPHEN [Suspect]
     Active Substance: ACETAMINOPHEN
     Dosage: (PREGNANCY WITH CHILD 2)
     Route: 065
     Dates: start: 201012, end: 201107

REACTIONS (1)
  - Exposure during pregnancy [Unknown]
